FAERS Safety Report 5902686-9 (Version None)
Quarter: 2008Q3

REPORT INFORMATION
  Report Type: 
  Country: None (occurrence: None)
  Receive Date: 20080929
  Receipt Date: 20080929
  Transmission Date: 20090109
  Serious: No
  Sender: FDA-Public Use
  Company Number: None

PATIENT
  Age: 37 Year
  Sex: Female
  Weight: 118 kg

DRUGS (3)
  1. CIPRO [Suspect]
     Indication: DIVERTICULITIS
     Dosage: 400MG Q12H IV
     Route: 042
     Dates: start: 20080807, end: 20080808
  2. FLAGYL [Suspect]
     Dosage: 500MG Q6H IV
     Route: 042
     Dates: start: 20080807, end: 20080808
  3. VICODIN [Concomitant]

REACTIONS (1)
  - URTICARIA [None]
